FAERS Safety Report 7190762-5 (Version None)
Quarter: 2010Q4

REPORT INFORMATION
  Report Type: 
  Country: None (occurrence: None)
  Receive Date: 20101223
  Receipt Date: 20101211
  Transmission Date: 20110411
  Serious: Yes (Other)
  Sender: FDA-Public Use
  Company Number: US-PFIZER INC-US-WYE-H14446910

PATIENT
  Sex: Female

DRUGS (4)
  1. ADVIL [Suspect]
     Indication: PRODUCT USED FOR UNKNOWN INDICATION
     Dosage: UNK
     Route: 048
     Dates: end: 20100101
  2. CELEBREX [Concomitant]
     Dosage: UNK
     Route: 065
     Dates: start: 20100201, end: 20100326
  3. NEXIUM [Concomitant]
     Route: 048
  4. PRINZIDE [Concomitant]
     Dosage: UNK
     Route: 065
     Dates: start: 20100101, end: 20100402

REACTIONS (1)
  - DRUG ABUSE [None]
